FAERS Safety Report 12108672 (Version 1)
Quarter: 2016Q1

REPORT INFORMATION
  Report Type: Spontaneous
  Country: US (occurrence: None)
  Receive Date: 20160222
  Receipt Date: 20160222
  Transmission Date: 20160526
  Serious: Yes (Life-Threatening, Hospitalization, Disabling, Other)
  Sender: FDA-Public Use
  Company Number: None

PATIENT
  Age: 42 Year
  Sex: Female
  Weight: 77.11 kg

DRUGS (1)
  1. 5-FU [Suspect]
     Active Substance: FLUOROURACIL
     Indication: COLON CANCER
     Route: 042
     Dates: start: 20140319, end: 20140320

REACTIONS (5)
  - Choking [None]
  - Mucosal inflammation [None]
  - Chromosomal mutation [None]
  - Dihydropyrimidine dehydrogenase deficiency [None]
  - Infusion related reaction [None]

NARRATIVE: CASE EVENT DATE: 20140319
